FAERS Safety Report 18022920 (Version 2)
Quarter: 2020Q3

REPORT INFORMATION
  Report Type: Spontaneous
  Country: NL (occurrence: NL)
  Receive Date: 20200714
  Receipt Date: 20200723
  Transmission Date: 20201103
  Serious: Yes (Other)
  Sender: FDA-Public Use
  Company Number: NL-SA-2020SA178274

PATIENT

DRUGS (2)
  1. ELIGLUSTAT. [Suspect]
     Active Substance: ELIGLUSTAT
     Indication: GAUCHER^S DISEASE TYPE I
     Dosage: 200 MG, BID
     Route: 048
     Dates: start: 20200415, end: 2020
  2. ELIGLUSTAT. [Suspect]
     Active Substance: ELIGLUSTAT
     Dosage: 200 MG, QD
     Route: 048
     Dates: start: 2020, end: 20200507

REACTIONS (4)
  - Dizziness [Recovering/Resolving]
  - Abdominal distension [Recovering/Resolving]
  - Erectile dysfunction [Recovering/Resolving]
  - Vision blurred [Recovering/Resolving]

NARRATIVE: CASE EVENT DATE: 202004
